FAERS Safety Report 6994333-2 (Version None)
Quarter: 2010Q3

REPORT INFORMATION
  Report Type: 
  Country: None (occurrence: None)
  Receive Date: 20100917
  Receipt Date: 20100907
  Transmission Date: 20110219
  Serious: Yes (Other)
  Sender: FDA-Public Use
  Company Number: US-PFIZER INC-2009296900

PATIENT
  Sex: Male
  Weight: 86.168 kg

DRUGS (9)
  1. TIKOSYN [Suspect]
     Indication: ATRIAL FIBRILLATION
     Dosage: 500 UG, 2X/DAY
     Route: 048
     Dates: start: 20090918
  2. TIKOSYN [Suspect]
     Dosage: 125 UG, 2X/DAY
  3. DILTIAZEM [Suspect]
     Dosage: 120 MG, 1X/DAY, DAILY
  4. POTASSIUM CHLORIDE [Concomitant]
     Dosage: 20 MG, 2X/DAY
  5. COZAAR [Concomitant]
     Dosage: 100 MG, 1X/DAY, DAILY
  6. TAURINE [Concomitant]
     Indication: ARRHYTHMIA
     Dosage: UNK
  7. ASPIRINE [Concomitant]
     Indication: PROPHYLAXIS
     Dosage: UNK, DAILY
  8. ASPIRINE [Concomitant]
     Indication: INFLAMMATION
  9. NAPROSYN [Concomitant]
     Dosage: UNK

REACTIONS (3)
  - DYSPNOEA [None]
  - HEART RATE DECREASED [None]
  - PRODUCTIVE COUGH [None]
